FAERS Safety Report 5691551-0 (Version None)
Quarter: 2008Q2

REPORT INFORMATION
  Report Type: 
  Country: None (occurrence: None)
  Receive Date: 20080402
  Receipt Date: 20080325
  Transmission Date: 20081010
  Serious: Yes (Hospitalization)
  Sender: FDA-Public Use
  Company Number: US-ROCHE-555062

PATIENT
  Age: 60 Year
  Sex: Female
  Weight: 75.8 kg

DRUGS (4)
  1. BONIVA [Suspect]
     Indication: OSTEOPOROSIS
     Route: 065
     Dates: start: 20080213
  2. CELEXA [Concomitant]
     Indication: DEPRESSION
     Dosage: PATIENT REPORTED HAD BEEN RECEIVING FOR A LONG TIME
  3. FLEXERIL [Concomitant]
     Indication: FIBROMYALGIA
     Dosage: FREQUENCY: AS REQUIRED
  4. HYDROCODONE BITARTRATE [Concomitant]
     Indication: FIBROMYALGIA
     Dosage: FREQUENCY: AS REQUIRED

REACTIONS (3)
  - CHEST PAIN [None]
  - EXPIRED DRUG ADMINISTERED [None]
  - HYPERTENSION [None]
